FAERS Safety Report 24699948 (Version 1)
Quarter: 2024Q4

REPORT INFORMATION
  Report Type: Spontaneous
  Country: US (occurrence: US)
  Receive Date: 20241205
  Receipt Date: 20241205
  Transmission Date: 20250114
  Serious: Yes (Other)
  Sender: ALIMERA
  Company Number: US-ALIMERA SCIENCES LIMITED-US-A16013-24-000357

PATIENT
  Sex: Female

DRUGS (1)
  1. YUTIQ [Suspect]
     Active Substance: FLUOCINOLONE ACETONIDE
     Indication: Birdshot chorioretinopathy
     Dosage: 0.18 MILLIGRAM, SINGLE - LEFT EYE
     Route: 031
     Dates: start: 2022

REACTIONS (3)
  - Intraocular pressure increased [Unknown]
  - Glaucoma drainage device placement [Unknown]
  - Off label use [Unknown]

NARRATIVE: CASE EVENT DATE: 20220101
